FAERS Safety Report 25003817 (Version 1)
Quarter: 2025Q1

REPORT INFORMATION
  Report Type: Spontaneous
  Country: CA (occurrence: CA)
  Receive Date: 20250224
  Receipt Date: 20250224
  Transmission Date: 20250408
  Serious: Yes (Other)
  Sender: BAUSCH AND LOMB
  Company Number: CA-BAUSCH-BL-2025-002287

PATIENT
  Age: 77 Year
  Sex: Male

DRUGS (1)
  1. JUBLIA [Suspect]
     Active Substance: EFINACONAZOLE
     Indication: Onychomycosis
     Route: 061

REACTIONS (3)
  - Burning sensation [Recovering/Resolving]
  - Cellulitis [Recovering/Resolving]
  - Peripheral swelling [Recovering/Resolving]
